FAERS Safety Report 4816777-7 (Version None)
Quarter: 2005Q4

REPORT INFORMATION
  Report Type: 
  Country: None (occurrence: None)
  Receive Date: 20051028
  Receipt Date: 20051018
  Transmission Date: 20060501
  Serious: Yes (Other)
  Sender: FDA-Public Use
  Company Number: 2005-03966

PATIENT
  Age: 6 Month
  Sex: Female

DRUGS (14)
  1. FENTANYL CITRATE [Suspect]
     Indication: LIFE SUPPORT
     Dosage: 2 UG/KG/HR, INTRAVENOUS
     Route: 042
  2. FENTANYL CITRATE [Suspect]
     Indication: SURGERY
     Dosage: 2 UG/KG/HR, INTRAVENOUS
     Route: 042
  3. MIDAZOLAM (MIDOZOLAM [Suspect]
     Indication: LIFE SUPPORT
     Dosage: 0.2 MG/KG/HR, INTRAVENOUS
     Route: 042
  4. MIDAZOLAM (MIDOZOLAM [Suspect]
     Indication: SURGERY
     Dosage: 0.2 MG/KG/HR, INTRAVENOUS
     Route: 042
  5. UNSPECIFIED OPIOID () [Suspect]
     Indication: LIFE SUPPORT
  6. UNSPECIFIED OPIOID () [Suspect]
     Indication: SURGERY
  7. UNSPECIFIED BENZODIAZEPINE () [Suspect]
     Indication: LIFE SUPPORT
  8. UNSPECIFIED BENZODIAZEPINE () [Suspect]
     Indication: SURGERY
  9. FLUTICASONE PROPIONATE [Concomitant]
  10. ELEMENTAL IRON [Concomitant]
  11. ERYTHROPOIETIN (ERYTHROPOIETIN) [Concomitant]
  12. URSODIOL (URSODEOXYCHOLIC ACID) [Concomitant]
  13. CALCIUM CARBONATE (CALCIUM CARBONATE) [Concomitant]
  14. DIHYDROTACHYSTEROL [Concomitant]

REACTIONS (4)
  - CATHETER RELATED COMPLICATION [None]
  - DEVICE FAILURE [None]
  - DRUG WITHDRAWAL SYNDROME [None]
  - MYOCARDIAL ISCHAEMIA [None]
